FAERS Safety Report 9367250 (Version 1)
Quarter: 2013Q2

REPORT INFORMATION
  Report Type: Spontaneous
  Country: US (occurrence: US)
  Receive Date: 20130625
  Receipt Date: 20130625
  Transmission Date: 20140414
  Serious: No
  Sender: FDA-Public Use
  Company Number: US-ASTELLAS-2012US005981

PATIENT
  Sex: 0

DRUGS (7)
  1. VESICARE [Suspect]
     Indication: CYSTITIS
     Dosage: 5 MG, UID/QD
     Route: 048
     Dates: start: 20120609
  2. VESICARE [Suspect]
     Indication: BLADDER SPASM
  3. AMOXICILLIN [Concomitant]
     Indication: CYSTITIS
     Dosage: 250 MG, UID/QD
     Route: 048
     Dates: start: 20120619
  4. XANAX [Concomitant]
     Indication: ANXIETY
     Dosage: 0.5 MG, TID
     Route: 048
  5. COREG [Concomitant]
     Indication: CARDIAC DISORDER
     Dosage: 3.125 MG, BID
     Route: 048
     Dates: start: 2006
  6. ASPIRIN [Concomitant]
     Indication: CARDIAC DISORDER
     Dosage: 81 MG, UNKNOWN/D
     Route: 048
     Dates: start: 2008
  7. DOXEPIN [Concomitant]
     Indication: PRODUCT USED FOR UNKNOWN INDICATION
     Dosage: 50 MG, UID/QD
     Route: 048
     Dates: start: 20120619

REACTIONS (1)
  - Off label use [Unknown]
